FAERS Safety Report 9102257 (Version 1)
Quarter: 2013Q1

REPORT INFORMATION
  Report Type: Spontaneous
  Country: PL (occurrence: PL)
  Receive Date: 20130218
  Receipt Date: 20130218
  Transmission Date: 20140127
  Serious: Yes (Hospitalization)
  Sender: FDA-Public Use
  Company Number: PL-ASTRAZENECA-2013SE09428

PATIENT
  Age: 36 Year
  Sex: Female
  Weight: 47 kg

DRUGS (5)
  1. NEXIUM [Suspect]
     Indication: GASTROOESOPHAGEAL REFLUX DISEASE
     Route: 048
     Dates: start: 201002, end: 201212
  2. NEXIUM [Suspect]
     Indication: GASTROOESOPHAGEAL REFLUX DISEASE
     Route: 048
  3. BETASERC [Concomitant]
     Indication: VERTIGO
  4. MEMOTROPIL [Concomitant]
     Indication: VERTIGO
  5. VITAMINUM B COMPOSITUM [Concomitant]
     Indication: VERTIGO

REACTIONS (5)
  - Balance disorder [Unknown]
  - Impaired driving ability [Unknown]
  - Inner ear disorder [Unknown]
  - Dizziness [Recovered/Resolved]
  - Vertigo [Recovered/Resolved]
